FAERS Safety Report 5006111-4 (Version None)
Quarter: 2006Q1

REPORT INFORMATION
  Report Type: 
  Country: None (occurrence: None)
  Receive Date: 20060328
  Receipt Date: 20060124
  Transmission Date: 20060701
  Serious: Yes (Hospitalization)
  Sender: FDA-Public Use
  Company Number: 05P-163-0317629-00

PATIENT
  Age: 76 Year
  Sex: Female
  Weight: 54.8852 kg

DRUGS (12)
  1. HUMIRA [Suspect]
     Indication: RHEUMATOID ARTHRITIS
     Dosage: 40 MG, 1 IN 2 WK, SUBCUTANEOUS
     Route: 058
     Dates: start: 20040609, end: 20051001
  2. HUMIRA [Suspect]
     Indication: RHEUMATOID ARTHRITIS
     Dosage: 40 MG, 1 IN 2 WK, SUBCUTANEOUS
     Route: 058
     Dates: start: 20040609, end: 20051018
  3. DILTIA [Concomitant]
  4. DIGOXIN [Concomitant]
  5. FAMOTIDINE [Concomitant]
  6. GEMFIBROZIL [Concomitant]
  7. LISINOPRIL [Concomitant]
  8. QUININE SULFATE [Concomitant]
  9. FOLIC ACID [Concomitant]
  10. ASCORBIC ACID [Concomitant]
  11. MULTIVITAMIN [Concomitant]
  12. SALBUTAMOL [Concomitant]

REACTIONS (1)
  - BREAST CANCER [None]
